FAERS Safety Report 23624966 (Version 1)
Quarter: 2024Q1

REPORT INFORMATION
  Report Type: Report from Study
  Country: ES (occurrence: ES)
  Receive Date: 20240313
  Receipt Date: 20240313
  Transmission Date: 20240409
  Serious: Yes (Hospitalization, Other)
  Sender: FDA-Public Use
  Company Number: ES-BoehringerIngelheim-2024-BI-013155

PATIENT
  Age: 81 Year
  Sex: Female

DRUGS (4)
  1. MELOXICAM [Suspect]
     Active Substance: MELOXICAM
     Indication: Wound infection
  2. AMOXICILLIN\CLAVULANIC ACID [Suspect]
     Active Substance: AMOXICILLIN\CLAVULANIC ACID
     Indication: Product used for unknown indication
  3. QUINAPRIL [Concomitant]
     Active Substance: QUINAPRIL
     Indication: Product used for unknown indication
  4. AMILORIDE [Concomitant]
     Active Substance: AMILORIDE
     Indication: Product used for unknown indication

REACTIONS (3)
  - Drug-induced liver injury [Recovered/Resolved]
  - Drug reaction with eosinophilia and systemic symptoms [Recovered/Resolved]
  - Intentional product use issue [Unknown]
